FAERS Safety Report 5129196-3 (Version None)
Quarter: 2006Q4

REPORT INFORMATION
  Report Type: 
  Country: None (occurrence: None)
  Receive Date: 20061012
  Receipt Date: 20061005
  Transmission Date: 20070319
  Serious: Yes (Death, Hospitalization)
  Sender: FDA-Public Use
  Company Number: 200610IM000565

PATIENT
  Sex: Male

DRUGS (1)
  1. ACTIMMUNE [Suspect]
     Indication: IDIOPATHIC PULMONARY FIBROSIS
     Dates: start: 20020830, end: 20030108

REACTIONS (2)
  - COR PULMONALE [None]
  - GENERAL PHYSICAL HEALTH DETERIORATION [None]
